FAERS Safety Report 17950054 (Version 2)
Quarter: 2020Q3

REPORT INFORMATION
  Report Type: Spontaneous
  Country: ES (occurrence: ES)
  Receive Date: 20200626
  Receipt Date: 20200713
  Transmission Date: 20201104
  Serious: Yes (Hospitalization, Other)
  Sender: FDA-Public Use
  Company Number: ES-PFIZER INC-2020244459

PATIENT
  Age: 83 Year
  Sex: Female
  Weight: 94 kg

DRUGS (12)
  1. VENLAFAXINE HCL [Suspect]
     Active Substance: VENLAFAXINE HYDROCHLORIDE
     Dosage: 150 MG, ONCE DAILY (1?0?0)
  2. ACENOCOUMAROL [Suspect]
     Active Substance: ACENOCOUMAROL
     Dosage: 1 MG AS PRESCRIBED
  3. CYANOCOBALAMIN. [Suspect]
     Active Substance: CYANOCOBALAMIN
     Dosage: 1000 UG, 1 AMPOULE WEEKLY
     Route: 048
  4. PARACETAMOL + TRAMADOL [Suspect]
     Active Substance: ACETAMINOPHEN\TRAMADOL
     Indication: PAIN
     Dosage: 1 DF, 3X/DAY  (1?1?1, IF PAIN)
  5. FERROUS SULFATE. [Suspect]
     Active Substance: FERROUS SULFATE
     Dosage: 105 MG, 2X/DAY  (1?0?1)
  6. CALCIFEDIOL [Suspect]
     Active Substance: CALCIFEDIOL
     Dosage: 0.27 UG (0.266 MICROGRAM, 1 AMPOULE EVERY 15 DAYS)
     Route: 048
  7. CALCIUM DOBESILATE [Suspect]
     Active Substance: CALCIUM DOBESILATE
     Dosage: 500 MG, 2X/DAY (1?0?1)
  8. VALSARTAN. [Suspect]
     Active Substance: VALSARTAN
     Dosage: 80 MG, ONCE DAILY (1?0?0)
  9. OMEPRAZOLE. [Suspect]
     Active Substance: OMEPRAZOLE
     Dosage: 20 MG, DAILY (1?0?0)
  10. ZIPRASIDONE HCL [Suspect]
     Active Substance: ZIPRASIDONE HYDROCHLORIDE
     Dosage: 40 MG, ONCE DAILY  (1?0?0)
  11. FUROSEMIDE. [Suspect]
     Active Substance: FUROSEMIDE
     Dosage: 40 MILLIGRAM, (1?0.5?0)
     Route: 042
  12. SPIRONOLACTONE. [Suspect]
     Active Substance: SPIRONOLACTONE
     Dosage: 25 MG, ONCE DAILY (0?1?0)

REACTIONS (7)
  - Cardiac failure congestive [Unknown]
  - Acute kidney injury [Recovered/Resolved]
  - Acute respiratory failure [Unknown]
  - Hypernatraemia [Recovered/Resolved]
  - Confusional state [Recovered/Resolved]
  - Anaemia [Unknown]
  - Ileus paralytic [Recovered/Resolved]
